FAERS Safety Report 7528936-3 (Version None)
Quarter: 2011Q2

REPORT INFORMATION
  Report Type: 
  Country: None (occurrence: None)
  Receive Date: 20110607
  Receipt Date: 20110524
  Transmission Date: 20111010
  Serious: Yes (Other)
  Sender: FDA-Public Use
  Company Number: PHHY2011US46360

PATIENT
  Age: 82 Year
  Sex: Female
  Weight: 54.4 kg

DRUGS (4)
  1. DIOVAN [Suspect]
     Dosage: 160 MG, DAILY
  2. LIPITOR [Suspect]
     Indication: BLOOD CHOLESTEROL INCREASED
     Dosage: 10 MG, QD
     Route: 048
     Dates: start: 20080101
  3. DIOVAN [Suspect]
     Indication: HYPERTENSION
     Dosage: 360 MG, QD
     Route: 048
  4. METOPROLOL SUCCINATE [Concomitant]
     Dosage: 25 MG, UNK

REACTIONS (5)
  - BLOOD CREATININE INCREASED [None]
  - WRIST DEFORMITY [None]
  - ANKLE DEFORMITY [None]
  - HAND DEFORMITY [None]
  - LOSS OF CONSCIOUSNESS [None]
